FAERS Safety Report 25503387 (Version 1)
Quarter: 2025Q3

REPORT INFORMATION
  Report Type: Spontaneous
  Country: EU (occurrence: EU)
  Receive Date: 20250702
  Receipt Date: 20250702
  Transmission Date: 20251021
  Serious: Yes (Other)
  Sender: NOVARTIS
  Company Number: EU-SUN PHARMACEUTICAL INDUSTRIES LTD-2025RR-513040

PATIENT
  Age: 55 Year
  Sex: Female

DRUGS (5)
  1. LETROZOLE [Suspect]
     Active Substance: LETROZOLE
     Indication: Breast cancer
     Route: 065
     Dates: start: 20250524
  2. LEVOTHYROXINE [Concomitant]
     Active Substance: LEVOTHYROXINE
     Indication: Product used for unknown indication
     Dosage: 170 MG, QD
     Route: 065
  3. LEVOTHYROXINE [Concomitant]
     Active Substance: LEVOTHYROXINE
     Dosage: 150 MG, QD (EVERY MORNING  )
     Route: 065
  4. VITAMIN B12 [Concomitant]
     Active Substance: CYANOCOBALAMIN
     Indication: Neuropathy peripheral
     Route: 065
  5. Restaxil [Concomitant]
     Indication: Neuropathy peripheral
     Route: 065

REACTIONS (7)
  - Blood glucose increased [Unknown]
  - Neuropathy peripheral [Unknown]
  - Night sweats [Unknown]
  - Insomnia [Unknown]
  - Fluid retention [Unknown]
  - Constipation [Unknown]
  - Hot flush [Unknown]

NARRATIVE: CASE EVENT DATE: 20250604
